FAERS Safety Report 6904110-6 (Version None)
Quarter: 2010Q3

REPORT INFORMATION
  Report Type: 
  Country: None (occurrence: None)
  Receive Date: 20100804
  Receipt Date: 20090318
  Transmission Date: 20110219
  Serious: No
  Sender: FDA-Public Use
  Company Number: US-PFIZER INC-2008154935

PATIENT
  Sex: Male
  Weight: 83 kg

DRUGS (6)
  1. LYRICA [Suspect]
     Indication: SCIATICA
     Dosage: 75 MG, 1X/DAY
     Dates: start: 20081204
  2. ACICLOVIR [Concomitant]
     Dosage: 400 MG, 2X/DAY
  3. LEVOTHYROXINE [Concomitant]
     Dosage: 10 UG, 1X/DAY
  4. LIPITOR [Concomitant]
     Dosage: 10 MG, 1X/DAY
  5. AVODART [Concomitant]
     Dosage: 0.5 MG, 1X/DAY
  6. DEPO-TESTOSTERONE [Concomitant]
     Dosage: UNK
     Route: 030

REACTIONS (3)
  - DEPRESSION [None]
  - HEADACHE [None]
  - SENSATION OF HEAVINESS [None]
